FAERS Safety Report 25089246 (Version 1)
Quarter: 2025Q1

REPORT INFORMATION
  Report Type: Spontaneous
  Country: US (occurrence: None)
  Receive Date: 20250316
  Receipt Date: 20250316
  Transmission Date: 20250408
  Serious: No
  Sender: FDA-CTU
  Company Number: None

PATIENT
  Age: 83 Year
  Sex: Male

DRUGS (1)
  1. TIMOLOL MALEATE [Suspect]
     Active Substance: TIMOLOL MALEATE
     Dosage: 1 GTT DROP (S) DAILY OPHTHALMIC
     Route: 047

REACTIONS (1)
  - Eye irritation [None]

NARRATIVE: CASE EVENT DATE: 20250314
